FAERS Safety Report 4606322-3 (Version None)
Quarter: 2005Q1

REPORT INFORMATION
  Report Type: 
  Country: None (occurrence: None)
  Receive Date: 20050303
  Receipt Date: 20050102
  Transmission Date: 20050727
  Serious: No
  Sender: FDA-Public Use
  Company Number: 200510004BWH

PATIENT
  Sex: Male

DRUGS (1)
  1. LEVITRA [Suspect]
     Dosage: 10 MG, TOTAL DAILY, ORAL
     Route: 048

REACTIONS (3)
  - GINGIVAL PAIN [None]
  - GLOSSITIS [None]
  - UNEVALUABLE EVENT [None]
